FAERS Safety Report 9959945 (Version 1)
Quarter: 2014Q1

REPORT INFORMATION
  Report Type: Spontaneous
  Country: SE (occurrence: None)
  Receive Date: 20140227
  Receipt Date: 20140227
  Transmission Date: 20141002
  Serious: Yes (Hospitalization)
  Sender: FDA-Public Use
  Company Number: SYM-2014-18079

PATIENT
  Age: 24 Year
  Sex: Male

DRUGS (1)
  1. VOXRA [Suspect]
     Indication: PRODUCT USED FOR UNKNOWN INDICATION

REACTIONS (5)
  - Toxicity to various agents [None]
  - Intentional self-injury [None]
  - Sinus tachycardia [None]
  - Blood lactic acid increased [None]
  - Hallucination [None]
